FAERS Safety Report 4968589-1 (Version None)
Quarter: 2006Q2

REPORT INFORMATION
  Report Type: 
  Country: None (occurrence: None)
  Receive Date: 20060405
  Receipt Date: 20060322
  Transmission Date: 20061013
  Serious: Yes (Hospitalization)
  Sender: FDA-Public Use
  Company Number: 2006-DE-01527GD

PATIENT
  Sex: Male

DRUGS (1)
  1. DICLOFENAC (DICLOFENAC) [Suspect]
     Dosage: 33 MG/KG, PO
     Route: 048

REACTIONS (3)
  - BRADYARRHYTHMIA [None]
  - DRUG TOXICITY [None]
  - RENAL FAILURE [None]
